FAERS Safety Report 4913448-3 (Version None)
Quarter: 2006Q1

REPORT INFORMATION
  Report Type: 
  Country: None (occurrence: None)
  Receive Date: 20060113
  Receipt Date: 20050127
  Transmission Date: 20060701
  Serious: Yes (Hospitalization, Other)
  Sender: FDA-Public Use
  Company Number: HQWYE942228JAN05

PATIENT
  Age: 55 Year
  Sex: Female
  Weight: 59.02 kg

DRUGS (1)
  1. PREMPRO [Suspect]
     Indication: MENOPAUSE
     Dosage: 0.45MG/1.5MG ONCE
     Dates: start: 20030601

REACTIONS (1)
  - MYOCARDIAL INFARCTION [None]
